FAERS Safety Report 5064998-3 (Version None)
Quarter: 2006Q3

REPORT INFORMATION
  Report Type: 
  Country: None (occurrence: None)
  Receive Date: 20060726
  Receipt Date: 20060717
  Transmission Date: 20061208
  Serious: Yes (Other)
  Sender: FDA-Public Use
  Company Number: GBWYE771723JUN06

PATIENT
  Sex: Female

DRUGS (3)
  1. EFFEXOR XR [Suspect]
     Indication: DEPRESSION
     Dosage: SEE IMAGE
     Route: 064
     Dates: end: 20050418
  2. EFFEXOR XR [Suspect]
     Indication: DEPRESSION
     Dosage: SEE IMAGE
     Route: 064
     Dates: start: 20050419
  3. EFFEXOR [Suspect]
     Indication: DEPRESSION
     Dosage: 37.5MG
     Route: 064
     Dates: start: 20051019, end: 20051201

REACTIONS (7)
  - CLEFT PALATE [None]
  - CONGENITAL ANOMALY [None]
  - CONGENITAL JAW MALFORMATION [None]
  - DRUG EXPOSURE DURING PREGNANCY [None]
  - GENE MUTATION [None]
  - LOW SET EARS [None]
  - MANDIBULOFACIAL DYSOSTOSIS [None]
